FAERS Safety Report 20443884 (Version 2)
Quarter: 2022Q1

REPORT INFORMATION
  Report Type: Spontaneous
  Country: US (occurrence: US)
  Receive Date: 20220208
  Receipt Date: 20220303
  Transmission Date: 20220423
  Serious: Yes (Other)
  Sender: FDA-Public Use
  Company Number: US-BEH-2022141561

PATIENT
  Age: 25 Year
  Sex: Male
  Weight: 93.878 kg

DRUGS (8)
  1. PRIVIGEN [Suspect]
     Active Substance: HUMAN IMMUNOGLOBULIN G
     Indication: Hypogammaglobulinaemia
     Dosage: 45 GRAM
     Route: 042
     Dates: start: 20220121, end: 20220121
  2. PRIVIGEN [Suspect]
     Active Substance: HUMAN IMMUNOGLOBULIN G
     Dosage: 45 GRAM
     Route: 042
     Dates: start: 20220121, end: 20220121
  3. PRIVIGEN [Suspect]
     Active Substance: HUMAN IMMUNOGLOBULIN G
     Dosage: 45 GRAM
     Route: 042
     Dates: start: 20220121, end: 20220121
  4. PRIVIGEN [Suspect]
     Active Substance: HUMAN IMMUNOGLOBULIN G
     Dosage: UNK
     Route: 042
  5. ESOMEPRAZOLE [Concomitant]
     Active Substance: ESOMEPRAZOLE
  6. MONTELUKAST [Concomitant]
     Active Substance: MONTELUKAST SODIUM
  7. FEXOFENADINE [Concomitant]
     Active Substance: FEXOFENADINE HYDROCHLORIDE
  8. ONDANSETRON [Concomitant]
     Active Substance: ONDANSETRON

REACTIONS (2)
  - Rash [Recovered/Resolved]
  - Recalled product administered [Recovered/Resolved]

NARRATIVE: CASE EVENT DATE: 20220121
